FAERS Safety Report 17389180 (Version 13)
Quarter: 2021Q3

REPORT INFORMATION
  Report Type: Report from Study
  Country: None (occurrence: US)
  Receive Date: 20200206
  Receipt Date: 20210909
  Transmission Date: 20211014
  Serious: Yes (Hospitalization, Other)
  Sender: FDA-Public Use
  Company Number: US-ABBVIE-20K-163-3263036-00

PATIENT
  Age: 70 Year
  Sex: Female
  Weight: 64.01 kg

DRUGS (12)
  1. MODERNA COVID?19 VACCINE [Suspect]
     Active Substance: CX-024414
     Indication: COVID-19 IMMUNISATION
     Route: 030
  2. ENSURE [Concomitant]
     Active Substance: AMINO ACIDS\DEXTROSE\ELECTROLYTES NOS\SOYBEAN OIL\VITAMINS
     Indication: SUPPLEMENTATION THERAPY
  3. MODERNA COVID?19 VACCINE [Suspect]
     Active Substance: CX-024414
     Route: 030
     Dates: start: 20210131, end: 20210131
  4. OCUVITE [Concomitant]
     Active Substance: VITAMINS
     Indication: HYPERTENSION
  5. HUMIRA [Suspect]
     Active Substance: ADALIMUMAB
     Indication: PSORIASIS
     Route: 058
     Dates: end: 2019
  6. CRESTOR [Concomitant]
     Active Substance: ROSUVASTATIN CALCIUM
     Indication: BLOOD CHOLESTEROL INCREASED
  7. LUETIN [Concomitant]
     Indication: PRODUCT USED FOR UNKNOWN INDICATION
  8. HUMIRA [Suspect]
     Active Substance: ADALIMUMAB
     Indication: PSORIASIS
     Route: 058
     Dates: start: 2019
  9. HUMIRA [Suspect]
     Active Substance: ADALIMUMAB
     Indication: PSORIASIS
     Dosage: CF
     Route: 058
  10. CALCIUM [Concomitant]
     Active Substance: CALCIUM
     Indication: SUPPLEMENTATION THERAPY
  11. VITAMIN D [Concomitant]
     Active Substance: VITAMIN D NOS
     Indication: SUPPLEMENTATION THERAPY
  12. OCUVITE [Concomitant]
     Active Substance: VITAMINS
     Indication: SUPPLEMENTATION THERAPY

REACTIONS (60)
  - Meniscus injury [Recovered/Resolved]
  - Dysphonia [Unknown]
  - Dysgraphia [Not Recovered/Not Resolved]
  - Fall [Recovered/Resolved]
  - Stress [Recovered/Resolved]
  - Injection site haemorrhage [Recovering/Resolving]
  - Psoriasis [Not Recovered/Not Resolved]
  - Loss of consciousness [Recovered/Resolved]
  - Skin abrasion [Recovered/Resolved]
  - Gait disturbance [Not Recovered/Not Resolved]
  - Speech disorder [Not Recovered/Not Resolved]
  - Mobility decreased [Recovered/Resolved]
  - Purulent discharge [Unknown]
  - Nausea [Recovering/Resolving]
  - Facial bones fracture [Recovering/Resolving]
  - Macular degeneration [Unknown]
  - Injury [Unknown]
  - Weight decreased [Not Recovered/Not Resolved]
  - Mobility decreased [Recovering/Resolving]
  - Scar [Unknown]
  - Psoriasis [Recovered/Resolved]
  - Herpes zoster [Unknown]
  - Cerebral haemorrhage [Unknown]
  - Joint swelling [Recovering/Resolving]
  - Gait disturbance [Unknown]
  - Nasopharyngitis [Unknown]
  - Psoriasis [Recovered/Resolved]
  - Pain [Not Recovered/Not Resolved]
  - Influenza like illness [Recovered/Resolved]
  - Bacterial infection [Recovering/Resolving]
  - Peripheral swelling [Not Recovered/Not Resolved]
  - Decreased activity [Recovering/Resolving]
  - Decreased appetite [Recovered/Resolved]
  - Rib fracture [Not Recovered/Not Resolved]
  - Urticaria [Unknown]
  - Psoriasis [Recovering/Resolving]
  - Limb discomfort [Unknown]
  - Feeling cold [Recovering/Resolving]
  - Fall [Unknown]
  - Pyrexia [Recovered/Resolved]
  - Fungal infection [Unknown]
  - Diarrhoea [Recovering/Resolving]
  - Rash [Unknown]
  - Cellulitis [Not Recovered/Not Resolved]
  - Head injury [Unknown]
  - Contusion [Not Recovered/Not Resolved]
  - Cataract [Unknown]
  - Chills [Recovered/Resolved]
  - Rib fracture [Not Recovered/Not Resolved]
  - Joint swelling [Not Recovered/Not Resolved]
  - Fall [Recovered/Resolved]
  - Pain [Recovered/Resolved]
  - Concussion [Recovered/Resolved]
  - Cerebral haemorrhage [Unknown]
  - Off label use [Not Recovered/Not Resolved]
  - Arthropod bite [Unknown]
  - Feeling hot [Recovered/Resolved]
  - Sunburn [Unknown]
  - Unevaluable event [Not Recovered/Not Resolved]
  - Injection site pain [Recovering/Resolving]

NARRATIVE: CASE EVENT DATE: 201810
